FAERS Safety Report 4544450-1 (Version None)
Quarter: 2004Q4

REPORT INFORMATION
  Report Type: 
  Country: None (occurrence: None)
  Receive Date: 20041230
  Receipt Date: 20041222
  Transmission Date: 20050328
  Serious: Yes (Hospitalization)
  Sender: FDA-Public Use
  Company Number: D01200402247

PATIENT
  Age: 59 Year
  Sex: Male
  Weight: 91 kg

DRUGS (12)
  1. CISPLATIN [Suspect]
     Indication: SMALL CELL LUNG CANCER EXTENSIVE STAGE
     Dosage: 80 MG/M2 CONT - INTRAVENOUS NOS
     Route: 042
  2. ETOPOSIDE [Suspect]
     Indication: SMALL CELL LUNG CANCER EXTENSIVE STAGE
     Dosage: 120 MG/M2 GIVEN ON DAYS, 1, 2 AND 3, IN A 30-MINUTE INFUSION - INTRAVENOUS
     Route: 042
     Dates: start: 20040617, end: 20040619
  3. DOLASETRON [Concomitant]
  4. DEXAMETHASONE [Concomitant]
  5. LORAZEPAM [Concomitant]
  6. ALUMINIUM [Concomitant]
  7. OMEPRAZOLE [Concomitant]
  8. PROCHLORPERAZINE [Concomitant]
  9. TRAMADOL HCL [Concomitant]
  10. TEMAZEPAM [Concomitant]
  11. METOCLOPRAMIDE [Concomitant]
  12. ACETAMINOPHEN [Concomitant]

REACTIONS (6)
  - ANAEMIA [None]
  - INCONTINENCE [None]
  - LOSS OF CONSCIOUSNESS [None]
  - SYNCOPE [None]
  - THERAPEUTIC RESPONSE DECREASED [None]
  - VOMITING [None]
